FAERS Safety Report 25411962 (Version 1)
Quarter: 2025Q2

REPORT INFORMATION
  Report Type: Spontaneous
  Country: US (occurrence: US)
  Receive Date: 20250609
  Receipt Date: 20250609
  Transmission Date: 20250717
  Serious: Yes (Other)
  Sender: RANBAXY
  Company Number: US-SUN PHARMACEUTICAL INDUSTRIES LTD-2025R1-510201

PATIENT
  Age: 45 Year
  Sex: Male

DRUGS (6)
  1. BUDESONIDE [Suspect]
     Active Substance: BUDESONIDE
     Indication: Biliary cirrhosis
     Route: 065
  2. BUDESONIDE [Suspect]
     Active Substance: BUDESONIDE
     Indication: Autoimmune hepatitis
  3. URSODIOL [Suspect]
     Active Substance: URSODIOL
     Indication: Biliary cirrhosis
     Route: 065
  4. URSODIOL [Suspect]
     Active Substance: URSODIOL
     Indication: Autoimmune hepatitis
  5. OBETICHOLIC ACID [Suspect]
     Active Substance: OBETICHOLIC ACID
     Indication: Autoimmune hepatitis
     Route: 065
  6. OBETICHOLIC ACID [Suspect]
     Active Substance: OBETICHOLIC ACID
     Indication: Biliary cirrhosis

REACTIONS (1)
  - Therapy non-responder [Unknown]
